FAERS Safety Report 5479269-0 (Version None)
Quarter: 2007Q4

REPORT INFORMATION
  Report Type: 
  Country: None (occurrence: None)
  Receive Date: 20071003
  Receipt Date: 20070918
  Transmission Date: 20080405
  Serious: Yes (Hospitalization)
  Sender: FDA-Public Use
  Company Number: 2007S1008814

PATIENT
  Age: 75 Year
  Sex: Female

DRUGS (13)
  1. PROPRANOLOL [Suspect]
     Indication: HYPERTENSION
     Dosage: 80 MG; DAILY; ORAL
     Route: 048
     Dates: start: 20070917, end: 20070917
  2. OMEPRAZOLE [Concomitant]
  3. WARFARIN SODIUM [Concomitant]
  4. DYNACIRC [Concomitant]
  5. TEMAZEPAM [Concomitant]
  6. FUROSEMIDE [Concomitant]
  7. KLOR-CON [Concomitant]
  8. ALPRAZOLAM [Concomitant]
  9. FERROUS SULFATE TAB [Concomitant]
  10. ASCORBIC ACID [Concomitant]
  11. CYANOCOBALAMIN [Concomitant]
  12. WARFARIN SODIUM [Concomitant]
  13. ALPRAZOLAM [Concomitant]

REACTIONS (4)
  - BRONCHOSPASM [None]
  - LIP SWELLING [None]
  - REFUSAL OF TREATMENT BY PATIENT [None]
  - SWOLLEN TONGUE [None]
